FAERS Safety Report 9739189 (Version 1)
Quarter: 2013Q4

REPORT INFORMATION
  Report Type: Spontaneous
  Country: US (occurrence: US)
  Receive Date: 20131209
  Receipt Date: 20131209
  Transmission Date: 20140711
  Serious: No
  Sender: FDA-Public Use
  Company Number: US-PFIZER INC-2013349327

PATIENT
  Age: 47 Year
  Sex: Female
  Weight: 68.03 kg

DRUGS (3)
  1. LYRICA [Suspect]
     Indication: FIBROMYALGIA
     Dosage: UNK, DAILY (AT NIGHT)
     Dates: start: 20131130
  2. PROZAC [Concomitant]
     Indication: ANXIETY
     Dosage: UNK
  3. PROZAC [Concomitant]
     Indication: DEPRESSION

REACTIONS (1)
  - Tremor [Not Recovered/Not Resolved]
